FAERS Safety Report 16541956 (Version 2)
Quarter: 2019Q3

REPORT INFORMATION
  Report Type: Spontaneous
  Country: IT (occurrence: IT)
  Receive Date: 20190708
  Receipt Date: 20190712
  Transmission Date: 20191004
  Serious: Yes (Other)
  Sender: FDA-Public Use
  Company Number: IT-MYLANLABS-2019M1063109

PATIENT
  Age: 57 Year
  Sex: Female

DRUGS (4)
  1. ETOPOSIDE. [Suspect]
     Active Substance: ETOPOSIDE
     Indication: LUNG NEOPLASM MALIGNANT
     Dosage: 160 MILLIGRAM, CYCLE
     Route: 042
     Dates: start: 20190319, end: 20190319
  2. ONDANSETRON [Suspect]
     Active Substance: ONDANSETRON
     Indication: LUNG NEOPLASM MALIGNANT
     Dosage: 8 MILLIGRAM, CYCLE
     Route: 042
     Dates: start: 20190319, end: 20190319
  3. DEXAMETHASONE. [Suspect]
     Active Substance: DEXAMETHASONE
     Indication: LUNG NEOPLASM MALIGNANT
     Dosage: 4 MILLIGRAM, CYCLE
     Route: 042
     Dates: start: 20190319, end: 20190319
  4. RANITIDINE. [Suspect]
     Active Substance: RANITIDINE
     Indication: LUNG NEOPLASM MALIGNANT
     Dosage: 100 MILLIGRAM, CYCLE
     Route: 042
     Dates: start: 20190319, end: 20190319

REACTIONS (2)
  - Diarrhoea [Recovered/Resolved]
  - Dysentery [Recovered/Resolved]

NARRATIVE: CASE EVENT DATE: 20190319
